FAERS Safety Report 5313124-1 (Version None)
Quarter: 2007Q2

REPORT INFORMATION
  Report Type: 
  Country: None (occurrence: None)
  Receive Date: 20070430
  Receipt Date: 20070420
  Transmission Date: 20071010
  Serious: Yes (Other)
  Sender: FDA-Public Use
  Company Number: GB-PFIZER INC-2007032569

PATIENT
  Age: 63 Year
  Sex: Female
  Weight: 68 kg

DRUGS (4)
  1. FRAGMIN [Suspect]
     Indication: DEEP VEIN THROMBOSIS
     Route: 058
  2. FRAGMIN [Suspect]
     Route: 058
     Dates: start: 20070405, end: 20070412
  3. LANSOPRAZOLE [Concomitant]
     Route: 048
  4. AMLODIPINE [Concomitant]
     Route: 048

REACTIONS (1)
  - RASH [None]
